FAERS Safety Report 8371938-8 (Version None)
Quarter: 2012Q2

REPORT INFORMATION
  Report Type: 
  Country: None (occurrence: None)
  Receive Date: 20120518
  Receipt Date: 20120515
  Transmission Date: 20120825
  Serious: Yes (Death, Life-Threatening)
  Sender: FDA-Public Use
  Company Number: US-MERCK-1204USA02209

PATIENT
  Age: 36 Year
  Sex: Male

DRUGS (12)
  1. DARAPRIM [Concomitant]
     Route: 065
  2. ACYCLOVIR [Concomitant]
     Route: 065
  3. DAPSONE [Concomitant]
     Route: 065
  4. ZANTAC [Concomitant]
     Route: 065
  5. ISENTRESS [Suspect]
     Indication: HIV INFECTION
     Route: 048
     Dates: start: 20120227, end: 20120308
  6. PREDNISONE [Concomitant]
     Route: 065
  7. DIFLUCAN [Concomitant]
     Route: 065
  8. CELEXA [Concomitant]
     Route: 065
  9. LEUCOVORIN CALCIUM [Concomitant]
     Route: 065
  10. CLINDAMYCIN [Concomitant]
     Route: 065
  11. VFEND [Concomitant]
     Route: 065
  12. ZITHROMAX [Concomitant]
     Route: 065

REACTIONS (1)
  - DEATH [None]
